FAERS Safety Report 5013071-9 (Version None)
Quarter: 2006Q2

REPORT INFORMATION
  Report Type: 
  Country: None (occurrence: None)
  Receive Date: 20060530
  Receipt Date: 20060214
  Transmission Date: 20061013
  Serious: Yes (Life-Threatening, Other)
  Sender: FDA-Public Use
  Company Number: US-GLAXOSMITHKLINE-A0593692A

PATIENT
  Age: 19 Year
  Sex: Female
  Weight: 63.2 kg

DRUGS (2)
  1. WELLBUTRIN XL [Suspect]
     Indication: DEPRESSION
     Dosage: 300MG PER DAY
     Route: 048
     Dates: start: 20060122, end: 20060123
  2. CYMBALTA [Concomitant]
     Dosage: 30MG PER DAY
     Dates: start: 20051128, end: 20060123

REACTIONS (2)
  - GRAND MAL CONVULSION [None]
  - MUSCLE TWITCHING [None]
